FAERS Safety Report 8488141-3 (Version None)
Quarter: 2012Q3

REPORT INFORMATION
  Report Type: 
  Country: None (occurrence: None)
  Receive Date: 20120705
  Receipt Date: 20120702
  Transmission Date: 20120928
  Serious: No
  Sender: FDA-Public Use
  Company Number: PHHY2012BR035938

PATIENT
  Sex: Female
  Weight: 66 kg

DRUGS (10)
  1. EXELON [Suspect]
     Indication: DEMENTIA ALZHEIMER'S TYPE
     Dosage: 4.6 MG DAILY (9MG/5CM2)
     Route: 062
     Dates: start: 20120301
  2. XALATAN [Concomitant]
     Indication: GLAUCOMA
     Dosage: ONE DROP IN EACH EYE
     Route: 047
     Dates: start: 20100101
  3. SYSTANE (PROPYLENE GLYCOL/MACROGOL) [Concomitant]
     Dosage: ONE DROP IN LEFT EYE
     Route: 047
  4. LIPOSIC [Concomitant]
     Dosage: ONE DROP IN EACH EYE TWO TIMES A DAY
     Route: 047
  5. EXFORGE [Concomitant]
     Indication: CARDIAC DISORDER
     Dosage: 2 DF, QD
     Route: 048
  6. ALPRAZOLAM [Concomitant]
     Indication: SLEEP DISORDER
     Dosage: 1 DF, QD
     Route: 048
  7. SOMALGIN [Concomitant]
     Indication: CARDIAC DISORDER
     Dosage: 300 MG, QD
  8. LANTUS [Concomitant]
     Indication: DIABETES MELLITUS
     Dosage: 14 U, QD
     Dates: start: 20060601
  9. SOMALGIN [Concomitant]
     Dosage: 100 MG, QD
  10. CALCIUM CARBONATE [Concomitant]
     Indication: BONE DISORDER
     Dosage: 1 DF, QD
     Route: 048

REACTIONS (7)
  - DISORIENTATION [None]
  - DRUG INTOLERANCE [None]
  - DYSPHAGIA [None]
  - EATING DISORDER [None]
  - ABASIA [None]
  - AREFLEXIA [None]
  - HYPERSOMNIA [None]
